FAERS Safety Report 5678881-3 (Version None)
Quarter: 2008Q1

REPORT INFORMATION
  Report Type: 
  Country: None (occurrence: None)
  Receive Date: 20080325
  Receipt Date: 20080314
  Transmission Date: 20080703
  Serious: Yes (Other)
  Sender: FDA-Public Use
  Company Number: ES-JNJFOC-20040400044

PATIENT
  Age: 45 Year
  Sex: Female
  Weight: 50 kg

DRUGS (5)
  1. REMICADE [Suspect]
     Route: 042
  2. REMICADE [Suspect]
     Route: 042
  3. REMICADE [Suspect]
     Indication: COLITIS ULCERATIVE
     Route: 042
  4. AZATHIOPRINE [Concomitant]
     Indication: COLITIS ULCERATIVE
     Dosage: 17 MONTHS
     Route: 065
  5. PREDNISONE TAB [Concomitant]
     Indication: COLITIS ULCERATIVE
     Dosage: 30-5 MG DAILY.
     Route: 065

REACTIONS (3)
  - NON-HODGKIN'S LYMPHOMA [None]
  - PYREXIA [None]
  - RECTAL ULCER [None]
